FAERS Safety Report 8269691-1 (Version None)
Quarter: 2012Q2

REPORT INFORMATION
  Report Type: 
  Country: None (occurrence: None)
  Receive Date: 20120405
  Receipt Date: 20120326
  Transmission Date: 20120825
  Serious: No
  Sender: FDA-Public Use
  Company Number: 201203094

PATIENT
  Age: 9 Year
  Sex: Male

DRUGS (1)
  1. TESTIM [Suspect]
     Dosage: 50 MG
     Dates: start: 20100101

REACTIONS (3)
  - LYMPHOMA [None]
  - VOMITING [None]
  - ACCIDENTAL EXPOSURE [None]
